FAERS Safety Report 24534243 (Version 1)
Quarter: 2024Q4

REPORT INFORMATION
  Report Type: Report from Study
  Country: US (occurrence: US)
  Receive Date: 20241022
  Receipt Date: 20241022
  Transmission Date: 20250115
  Serious: Yes (Other)
  Sender: JAZZ
  Company Number: US-JAZZ-2022-US-013017

PATIENT
  Sex: Female

DRUGS (6)
  1. XYREM [Suspect]
     Active Substance: SODIUM OXYBATE
     Indication: Narcolepsy
     Dosage: 4.5 GRAM, BID
     Route: 048
  2. XYREM [Suspect]
     Active Substance: SODIUM OXYBATE
     Indication: Cataplexy
  3. AMLODIPINE BESYLATE [Concomitant]
     Active Substance: AMLODIPINE BESYLATE
     Dosage: 0000
     Dates: start: 20210110
  4. KETOCONAZOLE [Concomitant]
     Active Substance: KETOCONAZOLE
     Dosage: 0000
     Dates: start: 20180620
  5. NIZORAL [Concomitant]
     Active Substance: KETOCONAZOLE
     Dosage: 0000
     Dates: start: 20191115
  6. EXELDERM [SULCONAZOLE NITRATE] [Concomitant]
     Dosage: 0000
     Dates: start: 20191115

REACTIONS (6)
  - Fall [Unknown]
  - Craniofacial fracture [Unknown]
  - Adverse drug reaction [Unknown]
  - Night sweats [Unknown]
  - Nausea [Unknown]
  - Somnolence [Unknown]
